FAERS Safety Report 8798598 (Version 2)
Quarter: 2012Q4

REPORT INFORMATION
  Report Type: Spontaneous
  Country: US (occurrence: None)
  Receive Date: 20120914
  Receipt Date: 20120921
  Transmission Date: 20130627
  Serious: Yes (Hospitalization)
  Sender: FDA-Public Use
  Company Number: 2012AP002889

PATIENT
  Age: 17 Month
  Sex: Female

DRUGS (4)
  1. OXCARBAZEPINE [Suspect]
     Indication: PARTIAL SEIZURES WITH SECONDARY GENERALIZATION
  2. OXCARBAZEPINE [Suspect]
     Indication: OFF LABEL USE
  3. LEVETIRACETAM [Suspect]
     Indication: SEIZURES
  4. LEVETIRACETAM [Suspect]

REACTIONS (10)
  - Infantile spasms [None]
  - Partial seizures [None]
  - Off label use [None]
  - Infantile spasms [None]
  - Postictal paralysis [None]
  - Irritability [None]
  - Hypotonia [None]
  - Feeding disorder [None]
  - Abasia [None]
  - Speech disorder [None]
